FAERS Safety Report 5331980-8 (Version None)
Quarter: 2007Q2

REPORT INFORMATION
  Report Type: 
  Country: None (occurrence: None)
  Receive Date: 20070306
  Receipt Date: 20060508
  Transmission Date: 20071010
  Serious: Yes (Other)
  Sender: FDA-Public Use
  Company Number: A03200602895

PATIENT
  Age: 80 Year
  Sex: Male

DRUGS (3)
  1. PLAVIX [Suspect]
     Indication: CEREBROVASCULAR ACCIDENT PROPHYLAXIS
     Dosage: 75 MG QOD - ORAL
     Route: 048
     Dates: start: 20060301, end: 20060101
  2. ASPIRIN [Suspect]
     Indication: CEREBROVASCULAR ACCIDENT PROPHYLAXIS
     Dosage: 81 MG QD - ORAL
     Route: 048
  3. ATORVASTATIN CALCIUM [Concomitant]

REACTIONS (2)
  - HAEMOPTYSIS [None]
  - THROMBOCYTOPENIA [None]
